APPROVED DRUG PRODUCT: MIRTAZAPINE
Active Ingredient: MIRTAZAPINE
Strength: 30MG
Dosage Form/Route: TABLET, ORALLY DISINTEGRATING;ORAL
Application: A076307 | Product #002
Applicant: ACTAVIS LABORATORIES FL INC
Approved: Dec 17, 2003 | RLD: No | RS: No | Type: DISCN